FAERS Safety Report 16398242 (Version 1)
Quarter: 2019Q3

REPORT INFORMATION
  Report Type: Spontaneous
  Country: US (occurrence: US)
  Receive Date: 20190605
  Receipt Date: 20190605
  Transmission Date: 20191004
  Serious: Yes (Other)
  Sender: FDA-Public Use
  Company Number: None

PATIENT
  Age: 48 Year
  Sex: Female
  Weight: 108 kg

DRUGS (22)
  1. FUREOSEMEDE [Concomitant]
  2. LORAZEPAM. [Concomitant]
     Active Substance: LORAZEPAM
  3. BUDESINIDE NASAL SINCE [Concomitant]
  4. FLUTICAZONE [Concomitant]
  5. VITAMIN D3 [Concomitant]
     Active Substance: CHOLECALCIFEROL
  6. SUMATRIPTAN. [Concomitant]
     Active Substance: SUMATRIPTAN
  7. OLANZAPRINE [Concomitant]
  8. CYCLOBENZAPRINE. [Concomitant]
     Active Substance: CYCLOBENZAPRINE
  9. SERTILINE ORAL SOLUTION [Concomitant]
  10. ALBUTEROL. [Concomitant]
     Active Substance: ALBUTEROL
  11. D3 INFANT DROPS [Concomitant]
  12. HYDROCODONE LIQUID [Concomitant]
  13. HYDROCODONE BITARTRATE AND ACETAMINOPHEN [Suspect]
     Active Substance: ACETAMINOPHEN\HYDROCODONE BITARTRATE
     Indication: PAIN
     Dosage: ?          QUANTITY:15 ML?
     Route: 048
     Dates: start: 20190601
  14. FLUNISOLIDE. [Concomitant]
     Active Substance: FLUNISOLIDE
  15. PANTOPRAZOLE [Concomitant]
     Active Substance: PANTOPRAZOLE
  16. MULTIVITAMIN [Concomitant]
     Active Substance: VITAMINS
  17. ESTRIDIOL [Concomitant]
  18. ABILIFY INJECTIONS [Concomitant]
  19. ALLEGRA [Concomitant]
     Active Substance: FEXOFENADINE HYDROCHLORIDE
  20. FENTYNYL PATCHES [Concomitant]
  21. SINGULAIR [Concomitant]
     Active Substance: MONTELUKAST SODIUM
  22. AVAILABLE [Concomitant]

REACTIONS (3)
  - Gait disturbance [None]
  - Therapeutic product effect incomplete [None]
  - Therapy change [None]

NARRATIVE: CASE EVENT DATE: 20190601
